FAERS Safety Report 23848382 (Version 6)
Quarter: 2024Q3

REPORT INFORMATION
  Report Type: Spontaneous
  Country: PA (occurrence: PA)
  Receive Date: 20240513
  Receipt Date: 20240930
  Transmission Date: 20241017
  Serious: No
  Sender: PFIZER
  Company Number: PA-PFIZER INC-PV202400058855

PATIENT
  Age: 12 Year
  Sex: Female

DRUGS (1)
  1. GENOTROPIN [Suspect]
     Active Substance: SOMATROPIN
     Dosage: 2 MG, EVERY NIGHT
     Route: 058

REACTIONS (3)
  - Wrong technique in product usage process [Unknown]
  - Device material issue [Unknown]
  - Product communication issue [Unknown]
